FAERS Safety Report 8573273 (Version 4)
Quarter: 2012Q4

REPORT INFORMATION
  Report Type: 
  Country: US (occurrence: US)
  Receive Date: 20120522
  Receipt Date: 20120917
  Transmission Date: 20130627
  Serious: No
  Sender: FDA-Public Use
  Company Number: US-ASTRAZENECA-2010SE54105

PATIENT
  Age: 57 Year
  Sex: Female

DRUGS (9)
  1. NEXIUM [Suspect]
     Indication: GASTROOESOPHAGEAL REFLUX DISEASE
     Route: 048
  2. NEXIUM [Suspect]
     Indication: GASTRITIS
     Route: 048
  3. NEXIUM [Suspect]
     Indication: GASTROOESOPHAGEAL REFLUX DISEASE
     Route: 048
  4. NEXIUM [Suspect]
     Indication: GASTRITIS
     Route: 048
  5. NEXIUM [Suspect]
     Indication: GASTROOESOPHAGEAL REFLUX DISEASE
     Dosage: TAKING ONE IN THE MORNING AND ONE AT NIGHT
     Route: 048
  6. NEXIUM [Suspect]
     Indication: GASTRITIS
     Dosage: TAKING ONE IN THE MORNING AND ONE AT NIGHT
     Route: 048
  7. PRILOSEC [Suspect]
     Route: 048
  8. PREVACID [Concomitant]
  9. ZANTAC [Concomitant]

REACTIONS (15)
  - Pain [Unknown]
  - Gastrooesophageal reflux disease [Unknown]
  - Aphagia [Unknown]
  - Dysphagia [Unknown]
  - Laryngeal discomfort [Unknown]
  - Discomfort [Unknown]
  - Irritable bowel syndrome [Unknown]
  - Presyncope [Unknown]
  - Vomiting [Unknown]
  - Malaise [Unknown]
  - Abdominal discomfort [Unknown]
  - Abdominal pain upper [Unknown]
  - Drug dose omission [Unknown]
  - Intentional drug misuse [Unknown]
  - Drug ineffective [Unknown]
